FAERS Safety Report 17314619 (Version 1)
Quarter: 2020Q1

REPORT INFORMATION
  Report Type: Spontaneous
  Country: US (occurrence: US)
  Receive Date: 20200123
  Receipt Date: 20200123
  Transmission Date: 20200409
  Serious: Yes (Hospitalization)
  Sender: FDA-Public Use
  Company Number: None

PATIENT
  Age: 47 Year
  Sex: Female
  Weight: 66.8 kg

DRUGS (4)
  1. VORTIOXETINE 10 MG DAILY [Concomitant]
  2. EMPAGLIFLOZIN [Suspect]
     Active Substance: EMPAGLIFLOZIN
     Indication: TYPE 2 DIABETES MELLITUS
     Route: 048
  3. PREDNISONE 40 MG DAILY [Concomitant]
  4. DULAGLUTIDE. [Suspect]
     Active Substance: DULAGLUTIDE
     Dosage: ?          OTHER FREQUENCY:WEEKLY;?
     Route: 058

REACTIONS (7)
  - Blood glucose increased [None]
  - Glucose urine present [None]
  - Vomiting [None]
  - Blood urea decreased [None]
  - Herpes zoster [None]
  - Urine ketone body present [None]
  - Anion gap increased [None]

NARRATIVE: CASE EVENT DATE: 20191222
